FAERS Safety Report 14011056 (Version 1)
Quarter: 2017Q3

REPORT INFORMATION
  Report Type: Spontaneous
  Country: US (occurrence: US)
  Receive Date: 20170925
  Receipt Date: 20170925
  Transmission Date: 20171128
  Serious: Yes (Disabling, Other)
  Sender: FDA-Public Use
  Company Number: None

PATIENT
  Sex: Female
  Weight: 66.6 kg

DRUGS (6)
  1. XANAX [Concomitant]
     Active Substance: ALPRAZOLAM
  2. KEFLEX [Concomitant]
     Active Substance: CEPHALEXIN
  3. CONCERTA [Concomitant]
     Active Substance: METHYLPHENIDATE HYDROCHLORIDE
  4. MULTI VITAMIN [Concomitant]
     Active Substance: VITAMINS
  5. LEVOTHYROXINE. [Concomitant]
     Active Substance: LEVOTHYROXINE
  6. LAMOTRIGINE. [Suspect]
     Active Substance: LAMOTRIGINE
     Indication: SEIZURE
     Dosage: ?          QUANTITY:1 TABLET(S);?
     Route: 048

REACTIONS (15)
  - Speech disorder [None]
  - Dry mouth [None]
  - Therapy change [None]
  - Mood swings [None]
  - Contusion [None]
  - Crying [None]
  - Disturbance in attention [None]
  - Vision blurred [None]
  - Quality of life decreased [None]
  - Amnesia [None]
  - Fatigue [None]
  - Urticaria [None]
  - Confusional state [None]
  - Educational problem [None]
  - Alopecia [None]

NARRATIVE: CASE EVENT DATE: 20151021
